FAERS Safety Report 18609176 (Version 1)
Quarter: 2020Q4

REPORT INFORMATION
  Report Type: Spontaneous
  Country: IN (occurrence: IN)
  Receive Date: 20201214
  Receipt Date: 20201214
  Transmission Date: 20210114
  Serious: Yes (Hospitalization, Other)
  Sender: FDA-Public Use
  Company Number: IN-CIPLA LTD.-2020IN06251

PATIENT

DRUGS (2)
  1. DICLOFENAC [Suspect]
     Active Substance: DICLOFENAC
     Indication: TOOTHACHE
     Dosage: 50 MILLIGRAM, EVERY 4 HOURS (1-1-1-1-1-1)
     Route: 048
  2. AMLODIPINE [Concomitant]
     Active Substance: AMLODIPINE BESYLATE
     Indication: HYPERTENSION
     Dosage: 15 MILLIGRAM, QD (1-0-0)
     Route: 065

REACTIONS (1)
  - Nephropathy toxic [Recovered/Resolved]
